FAERS Safety Report 9271376 (Version 1)
Quarter: 2013Q2

REPORT INFORMATION
  Report Type: Spontaneous
  Country: CH (occurrence: CH)
  Receive Date: 20130506
  Receipt Date: 20130506
  Transmission Date: 20140414
  Serious: Yes (Other)
  Sender: FDA-Public Use
  Company Number: CH-JNJFOC-20130417056

PATIENT
  Age: 68 Year
  Sex: Male
  Weight: 64.85 kg

DRUGS (1)
  1. XARELTO [Suspect]
     Indication: ISCHAEMIC CEREBRAL INFARCTION
     Route: 048
     Dates: start: 20130307, end: 20130307

REACTIONS (2)
  - Hyperacusis [Recovered/Resolved]
  - Head discomfort [Recovered/Resolved]
